FAERS Safety Report 6833366-3 (Version None)
Quarter: 2010Q3

REPORT INFORMATION
  Report Type: 
  Country: None (occurrence: None)
  Receive Date: 20100712
  Receipt Date: 20070321
  Transmission Date: 20110219
  Serious: Yes (Other)
  Sender: FDA-Public Use
  Company Number: US-PFIZER INC-2007022755

PATIENT

DRUGS (1)
  1. CHANTIX [Suspect]
     Indication: EX-TOBACCO USER

REACTIONS (1)
  - DYSPNOEA [None]
